FAERS Safety Report 11044059 (Version 1)
Quarter: 2015Q2

REPORT INFORMATION
  Report Type: Spontaneous
  Country: JP (occurrence: JP)
  Receive Date: 20150417
  Receipt Date: 20150417
  Transmission Date: 20150821
  Serious: Yes (Hospitalization)
  Sender: FDA-Public Use
  Company Number: JP-SA-2014SA116041

PATIENT
  Age: 64 Year
  Sex: Male
  Weight: 61 kg

DRUGS (42)
  1. ELPLAT [Suspect]
     Active Substance: OXALIPLATIN
     Indication: RECTAL CANCER
     Dosage: I.V INFUSION SOLUTION
     Route: 042
  2. LEVOFOLINATE [Suspect]
     Active Substance: LEVOLEUCOVORIN CALCIUM
     Indication: RECTAL CANCER
     Dosage: IV INFUSION
     Route: 041
     Dates: start: 20130805, end: 20130806
  3. LEVOFOLINATE [Suspect]
     Active Substance: LEVOLEUCOVORIN CALCIUM
     Indication: RECTAL CANCER
     Dosage: IV INFUSION
     Route: 041
     Dates: start: 20130819, end: 20130820
  4. FLUOROURACIL. [Suspect]
     Active Substance: FLUOROURACIL
     Indication: RECTAL CANCER
     Route: 041
     Dates: start: 20131007, end: 20131008
  5. CAMPTO [Suspect]
     Active Substance: IRINOTECAN
     Indication: RECTAL CANCER
     Dosage: IV INFUSION
     Route: 041
     Dates: start: 20131105, end: 20131105
  6. AMARYL [Concomitant]
     Active Substance: GLIMEPIRIDE
     Dates: end: 20140506
  7. CEFAMEZIN [Concomitant]
     Active Substance: CEFAZOLIN
     Dosage: START DATE: 12-NOV-13 (NOT ADDED IN SPECIFIED FIELD DUE TO AWARE RESTRICTIONS)
     Dates: end: 20131126
  8. LEVOFOLINATE [Suspect]
     Active Substance: LEVOLEUCOVORIN CALCIUM
     Indication: RECTAL CANCER
     Dosage: IV INFUSION
     Route: 041
     Dates: start: 20131007, end: 20131008
  9. FLUOROURACIL. [Suspect]
     Active Substance: FLUOROURACIL
     Indication: RECTAL CANCER
     Route: 041
     Dates: start: 20130819, end: 20130820
  10. FLUOROURACIL. [Suspect]
     Active Substance: FLUOROURACIL
     Indication: RECTAL CANCER
     Route: 040
     Dates: start: 20130902, end: 20130903
  11. AVASTIN [Suspect]
     Active Substance: BEVACIZUMAB
     Indication: RECTAL CANCER
     Route: 041
     Dates: start: 20131021, end: 20131021
  12. DECADRON [Concomitant]
     Active Substance: DEXAMETHASONE
     Dates: start: 20130805, end: 20131105
  13. ELPLAT [Suspect]
     Active Substance: OXALIPLATIN
     Indication: RECTAL CANCER
     Dosage: I.V INFUSION SOLUTION
     Route: 041
     Dates: start: 20130805, end: 20130805
  14. ELPLAT [Suspect]
     Active Substance: OXALIPLATIN
     Indication: RECTAL CANCER
     Dosage: I.V INFUSION SOLUTION
     Route: 041
     Dates: start: 20131007, end: 20131007
  15. FLUOROURACIL. [Suspect]
     Active Substance: FLUOROURACIL
     Indication: RECTAL CANCER
     Route: 041
     Dates: start: 20130805, end: 20130806
  16. ERBITUX [Suspect]
     Active Substance: CETUXIMAB
     Indication: RECTAL CANCER
     Route: 041
     Dates: start: 20131105, end: 20131105
  17. ELPLAT [Suspect]
     Active Substance: OXALIPLATIN
     Indication: RECTAL CANCER
     Dosage: I.V INFUSION SOLUTION
     Route: 041
     Dates: start: 20130819, end: 20130819
  18. ELPLAT [Suspect]
     Active Substance: OXALIPLATIN
     Indication: RECTAL CANCER
     Dosage: I.V INFUSION SOLUTION
     Route: 041
     Dates: start: 20130917, end: 20130917
  19. ELPLAT [Suspect]
     Active Substance: OXALIPLATIN
     Indication: RECTAL CANCER
     Dosage: I.V INFUSION SOLUTION
     Route: 041
     Dates: start: 20130902, end: 20130902
  20. FLUOROURACIL. [Suspect]
     Active Substance: FLUOROURACIL
     Indication: RECTAL CANCER
     Route: 040
     Dates: start: 20131021, end: 20131022
  21. LEVOFOLINATE [Suspect]
     Active Substance: LEVOLEUCOVORIN CALCIUM
     Indication: RECTAL CANCER
     Dosage: IV INFUSION
     Route: 041
     Dates: start: 20130902, end: 20130903
  22. FLUOROURACIL. [Suspect]
     Active Substance: FLUOROURACIL
     Indication: RECTAL CANCER
     Route: 040
     Dates: start: 20131007, end: 20131008
  23. AVASTIN [Suspect]
     Active Substance: BEVACIZUMAB
     Indication: RECTAL CANCER
     Route: 041
     Dates: start: 20130917, end: 20130917
  24. KYTRIL [Concomitant]
     Active Substance: GRANISETRON HYDROCHLORIDE
     Dates: start: 20130805, end: 20131105
  25. LEVOFOLINATE [Suspect]
     Active Substance: LEVOLEUCOVORIN CALCIUM
     Indication: RECTAL CANCER
     Dosage: IV INFUSION
     Route: 041
     Dates: start: 20130917, end: 20130918
  26. LEVOFOLINATE [Suspect]
     Active Substance: LEVOLEUCOVORIN CALCIUM
     Indication: RECTAL CANCER
     Dosage: IV INFUSION
     Route: 041
     Dates: start: 20131021, end: 20131022
  27. FLUOROURACIL. [Suspect]
     Active Substance: FLUOROURACIL
     Indication: RECTAL CANCER
     Route: 040
     Dates: start: 20130819, end: 20130820
  28. FLUOROURACIL. [Suspect]
     Active Substance: FLUOROURACIL
     Indication: RECTAL CANCER
     Route: 040
     Dates: start: 20130917, end: 20130918
  29. AVASTIN [Suspect]
     Active Substance: BEVACIZUMAB
     Indication: RECTAL CANCER
     Route: 041
     Dates: start: 20130805, end: 20130805
  30. AVASTIN [Suspect]
     Active Substance: BEVACIZUMAB
     Indication: RECTAL CANCER
     Route: 041
     Dates: start: 20131007, end: 20131007
  31. POLARAMINE [Concomitant]
     Active Substance: DEXCHLORPHENIRAMINE MALEATE
     Dates: start: 20131105, end: 20131105
  32. OPYSTAN [Concomitant]
     Active Substance: MEPERIDINE
     Dates: start: 20131114, end: 20131114
  33. ELPLAT [Suspect]
     Active Substance: OXALIPLATIN
     Indication: RECTAL CANCER
     Dosage: I.V INFUSION SOLUTION
     Route: 042
  34. ELPLAT [Suspect]
     Active Substance: OXALIPLATIN
     Indication: RECTAL CANCER
     Dosage: I.V INFUSION SOLUTION
     Route: 041
     Dates: start: 20131021, end: 20131021
  35. AVASTIN [Suspect]
     Active Substance: BEVACIZUMAB
     Indication: RECTAL CANCER
     Route: 041
     Dates: start: 20130902, end: 20130902
  36. DECADRON [Concomitant]
     Active Substance: DEXAMETHASONE
  37. PREDONINE [Concomitant]
     Active Substance: PREDNISOLONE\PREDNISOLONE ACETATE\PREDNISOLONE SODIUM SUCCINATE
     Dates: start: 20131114, end: 20131120
  38. FLUOROURACIL. [Suspect]
     Active Substance: FLUOROURACIL
     Indication: RECTAL CANCER
     Dosage: BOLUS
     Route: 040
     Dates: start: 20130805, end: 20130806
  39. FLUOROURACIL. [Suspect]
     Active Substance: FLUOROURACIL
     Indication: RECTAL CANCER
     Route: 041
     Dates: start: 20130902, end: 20130903
  40. FLUOROURACIL. [Suspect]
     Active Substance: FLUOROURACIL
     Indication: RECTAL CANCER
     Route: 041
     Dates: start: 20130917, end: 20130918
  41. FLUOROURACIL. [Suspect]
     Active Substance: FLUOROURACIL
     Indication: RECTAL CANCER
     Route: 041
     Dates: start: 20131021, end: 20131022
  42. AVASTIN [Suspect]
     Active Substance: BEVACIZUMAB
     Indication: RECTAL CANCER
     Route: 041
     Dates: start: 20130819, end: 20130819

REACTIONS (3)
  - Interstitial lung disease [Recovering/Resolving]
  - Pneumomediastinum [Recovered/Resolved]
  - Neutrophil count decreased [Unknown]

NARRATIVE: CASE EVENT DATE: 20130903
